FAERS Safety Report 5134878-3 (Version None)
Quarter: 2006Q4

REPORT INFORMATION
  Report Type: 
  Country: None (occurrence: None)
  Receive Date: 20061025
  Receipt Date: 20061011
  Transmission Date: 20070319
  Serious: Yes (Other)
  Sender: FDA-Public Use
  Company Number: PHBS2006JP16020

PATIENT
  Age: 54 Year
  Sex: Male

DRUGS (2)
  1. CYCLOSPORINE [Suspect]
     Indication: PSORIASIS
     Dates: start: 20040901
  2. NEORAL [Suspect]
     Indication: PSORIASIS
     Dosage: 100 MG/D
     Route: 048

REACTIONS (7)
  - INFECTION [None]
  - IRIDOCYCLITIS [None]
  - PSORIASIS [None]
  - UPPER RESPIRATORY TRACT INFLAMMATION [None]
  - UVEITIS [None]
  - VISION BLURRED [None]
  - VISUAL ACUITY REDUCED [None]
